FAERS Safety Report 23924087 (Version 1)
Quarter: 2024Q2

REPORT INFORMATION
  Report Type: Report from Study
  Country: US (occurrence: US)
  Receive Date: 20240531
  Receipt Date: 20240531
  Transmission Date: 20240716
  Serious: Yes (Other)
  Sender: FDA-Public Use
  Company Number: US-TEVA-VS-3201714

PATIENT
  Age: 64 Year
  Sex: Female

DRUGS (13)
  1. AUSTEDO [Suspect]
     Active Substance: DEUTETRABENAZINE
     Indication: Adverse drug reaction
     Dosage: TAKE 1 TABLET BY MOUTH TWICE A DAY
     Route: 048
  2. SEROQUEL [Concomitant]
     Active Substance: QUETIAPINE FUMARATE
  3. OZEMPIC [Concomitant]
     Active Substance: SEMAGLUTIDE
     Dosage: 0.2 SOP 2MG/3ML, WOMENS 50+ M TAB
  4. LINZESS [Concomitant]
     Active Substance: LINACLOTIDE
  5. ATORVASTATIN [Concomitant]
     Active Substance: ATORVASTATIN
  6. EFFEXOR XR [Concomitant]
     Active Substance: VENLAFAXINE HYDROCHLORIDE
     Dosage: CP2 75 MG
  7. EZETIMIBE [Concomitant]
     Active Substance: EZETIMIBE
  8. IRON [Concomitant]
     Active Substance: IRON
     Dosage: HIGH-PO TBC 142
  9. LAMICTAL XR [Concomitant]
     Active Substance: LAMOTRIGINE
     Dosage: TB2 100 MG
  10. OMEPRAZOLE [Concomitant]
     Active Substance: DONEPEZIL HYDROCHLORIDE\OMEPRAZOLE\OMEPRAZOLE MAGNESIUM
     Dosage: CPD
  11. TRAZODONE [Concomitant]
     Active Substance: TRAZODONE HYDROCHLORIDE
     Dosage: TRAZODONE HC
  12. VITAMIN B12 [Concomitant]
     Active Substance: CYANOCOBALAMIN
  13. VITAMIN D3 [Concomitant]
     Active Substance: CHOLECALCIFEROL

REACTIONS (1)
  - Dyskinesia [Not Recovered/Not Resolved]
